FAERS Safety Report 8858008 (Version 1)
Quarter: 2012Q4

REPORT INFORMATION
  Report Type: 
  Country: US (occurrence: US)
  Receive Date: 20121024
  Receipt Date: 20121024
  Transmission Date: 20130627
  Serious: Yes (Hospitalization)
  Sender: FDA-Public Use
  Company Number: US-AMGEN-USASP2012003654

PATIENT
  Age: 51 Year
  Sex: Female
  Weight: 64.85 kg

DRUGS (5)
  1. ENBREL [Suspect]
     Indication: RHEUMATOID ARTHRITIS
     Dosage: 50 mg, qwk
     Route: 058
     Dates: start: 19990101
  2. CELEBREX [Concomitant]
     Dosage: 100 mg, UNK
  3. SYNTHROID [Concomitant]
     Dosage: 100 mug, UNK
  4. NEXIUM                             /01479302/ [Concomitant]
     Dosage: 40 mg, UNK
  5. HYDROCODONE [Concomitant]

REACTIONS (5)
  - Interstitial lung disease [Unknown]
  - Nerve compression [Not Recovered/Not Resolved]
  - Neuralgia [Unknown]
  - Rheumatoid arthritis [Unknown]
  - Sinusitis [Unknown]
